FAERS Safety Report 7563919-9 (Version None)
Quarter: 2011Q2

REPORT INFORMATION
  Report Type: 
  Country: None (occurrence: None)
  Receive Date: 20110622
  Receipt Date: 20110616
  Transmission Date: 20111010
  Serious: Yes (Death)
  Sender: FDA-Public Use
  Company Number: GB-TEVA-286837ISR

PATIENT
  Age: 80 Year
  Sex: Male

DRUGS (5)
  1. PHENYTOIN [Suspect]
     Indication: CEREBROVASCULAR ACCIDENT
  2. VALPROIC ACID [Suspect]
     Indication: STATUS EPILEPTICUS
  3. PHENYTOIN [Suspect]
     Indication: STATUS EPILEPTICUS
     Dosage: 400 MILLIGRAM;
     Route: 048
  4. BENZODIAZEPINE DERIVATIVES [Suspect]
  5. LEVETIRACETAM [Suspect]

REACTIONS (1)
  - STATUS EPILEPTICUS [None]
